FAERS Safety Report 21809651 (Version 1)
Quarter: 2023Q1

REPORT INFORMATION
  Report Type: Report from Study
  Country: US (occurrence: US)
  Receive Date: 20230103
  Receipt Date: 20230103
  Transmission Date: 20230417
  Serious: No
  Sender: FDA-Public Use
  Company Number: US-ABBVIE-4256117

PATIENT
  Sex: Male

DRUGS (1)
  1. VENETOCLAX [Suspect]
     Active Substance: VENETOCLAX
     Indication: Chronic lymphocytic leukaemia
     Dosage: TAKE WHOLE WITH WATER AND A MEAL AT APPROXIMATELY THE SAME TIME DAILY?FORM STRENGTH: 100 MILLIGRAM
     Route: 048

REACTIONS (1)
  - Pain [Unknown]
